FAERS Safety Report 8551432 (Version 4)
Quarter: 2013Q3

REPORT INFORMATION
  Report Type: Spontaneous
  Country: US (occurrence: US)
  Receive Date: 20120508
  Receipt Date: 20130711
  Transmission Date: 20140515
  Serious: Yes (Hospitalization, Other)
  Sender: FDA-Public Use
  Company Number: US-PFIZER INC-2012108425

PATIENT
  Sex: Female
  Weight: 67.12 kg

DRUGS (12)
  1. LIPITOR [Suspect]
     Indication: BLOOD CHOLESTEROL INCREASED
     Dosage: 20 MG, 1X/DAY
     Route: 048
     Dates: start: 1999
  2. EFFEXOR XR [Suspect]
     Indication: DEPRESSION
     Dosage: 150 MG, 1X/DAY
     Route: 048
     Dates: start: 1999
  3. NORVASC [Suspect]
     Indication: HYPERTENSION
     Dosage: 10 MG, 1X/DAY
     Route: 048
  4. SYNTHROID [Concomitant]
     Indication: THYROID DISORDER
     Dosage: UNK
  5. PATADAY [Concomitant]
     Indication: EYE PRURITUS
     Dosage: UNK
  6. VENTOLIN [Concomitant]
     Indication: BRONCHITIS
     Dosage: UNK
  7. FLOVENT [Concomitant]
     Indication: ASTHMA
     Dosage: UNK, 1X/DAY
  8. ACETYLSALICYLIC ACID [Concomitant]
     Indication: CARDIAC DISORDER
     Dosage: 81 MG, 1X/DAY
  9. DRISDOL [Concomitant]
     Dosage: 50000 IU, UNK
  10. VITAMIN D3 [Concomitant]
     Dosage: 600 MG, 1X/DAY
  11. NICOTINE [Concomitant]
     Dosage: UNK
  12. CALCIUM [Concomitant]
     Dosage: UNK

REACTIONS (10)
  - Cholecystitis infective [Unknown]
  - Myocardial infarction [Unknown]
  - Intervertebral disc protrusion [Unknown]
  - Dysstasia [Unknown]
  - Dizziness [Unknown]
  - Bone disorder [Unknown]
  - Emotional disorder [Unknown]
  - Mood swings [Unknown]
  - Malaise [Unknown]
  - Nervousness [Unknown]
